FAERS Safety Report 18416612 (Version 3)
Quarter: 2020Q4

REPORT INFORMATION
  Report Type: Spontaneous
  Country: US (occurrence: US)
  Receive Date: 20201022
  Receipt Date: 20201118
  Transmission Date: 20210114
  Serious: No
  Sender: FDA-Public Use
  Company Number: US-PFIZER INC-2020407664

PATIENT
  Age: 57 Year

DRUGS (3)
  1. FELDENE [Suspect]
     Active Substance: PIROXICAM
     Indication: INFLAMMATION
  2. RELPAX [Suspect]
     Active Substance: ELETRIPTAN HYDROBROMIDE
     Dosage: UNK
  3. FELDENE [Suspect]
     Active Substance: PIROXICAM
     Indication: PAIN
     Dosage: UNK

REACTIONS (4)
  - Sinusitis [Unknown]
  - Vertigo [Unknown]
  - Hypoacusis [Unknown]
  - Inner ear disorder [Unknown]

NARRATIVE: CASE EVENT DATE: 202010
